FAERS Safety Report 24655857 (Version 2)
Quarter: 2025Q1

REPORT INFORMATION
  Report Type: Spontaneous
  Country: US (occurrence: US)
  Receive Date: 20241124
  Receipt Date: 20250313
  Transmission Date: 20250409
  Serious: Yes (Other)
  Sender: CSL BEHRING
  Company Number: US-BEH-2024185846

PATIENT
  Sex: Female

DRUGS (56)
  1. HIZENTRA [Suspect]
     Active Substance: HUMAN IMMUNOGLOBULIN G
     Indication: Immunodeficiency common variable
     Dosage: 10GM/50ML EVERY  WEEK
     Route: 058
     Dates: start: 20241029
  2. HIZENTRA [Suspect]
     Active Substance: HUMAN IMMUNOGLOBULIN G
     Dosage: 04 GM/20ML EVERY  WEEK
     Route: 058
     Dates: start: 20241029
  3. ALBUTEROL [Concomitant]
     Active Substance: ALBUTEROL
  4. AMITRIPTYLINE HYDROCHLORIDE [Concomitant]
     Active Substance: AMITRIPTYLINE HYDROCHLORIDE
  5. BENZONATATE [Concomitant]
     Active Substance: BENZONATATE
  6. BOOSTRIX-IPV [Concomitant]
     Active Substance: DIPHTHERIA AND TETANUS TOXOIDS AND ACELLULAR PERTUSSIS ADSORBED AND INACTIVATED POLIOVIRUS VACCINE
     Route: 065
  7. BUDESONIDE [Concomitant]
     Active Substance: BUDESONIDE
  8. CARBAMAZEPINE [Concomitant]
     Active Substance: CARBAMAZEPINE
  9. CELECOXIB [Concomitant]
     Active Substance: CELECOXIB
  10. CETIRIZINE [Concomitant]
     Active Substance: CETIRIZINE HYDROCHLORIDE
  11. CLOBETASOL [Concomitant]
     Active Substance: CLOBETASOL
  12. CLOBETASOL [Concomitant]
     Active Substance: CLOBETASOL
  13. Clonidine bnm [Concomitant]
  14. Cuvitru 1 [Concomitant]
  15. Cuvitru 1 [Concomitant]
  16. Cuvitru 1 [Concomitant]
  17. CYCLOBENZAPRINE [Concomitant]
     Active Substance: CYCLOBENZAPRINE
  18. EPINEPHRINE BITARTRATE [Concomitant]
     Active Substance: EPINEPHRINE BITARTRATE
  19. FAMOTIDINE [Concomitant]
     Active Substance: FAMOTIDINE
  20. FLUCONAZOLE [Concomitant]
     Active Substance: FLUCONAZOLE
  21. FLUCONAZOLE [Concomitant]
     Active Substance: FLUCONAZOLE
  22. FLUCONAZOLE [Concomitant]
     Active Substance: FLUCONAZOLE
  23. FOLIC ACID [Concomitant]
     Active Substance: FOLIC ACID
  24. GABAPENTIN [Concomitant]
     Active Substance: GABAPENTIN
  25. HUMIRA [Concomitant]
     Active Substance: ADALIMUMAB
  26. HYDROCHLOROTHIAZIDE [Concomitant]
     Active Substance: HYDROCHLOROTHIAZIDE
  27. HYDROXOCOBALAMIN HYDROCHLORIDE [Concomitant]
     Active Substance: HYDROXOCOBALAMIN HYDROCHLORIDE
  28. HYDROXYZINE [Concomitant]
     Active Substance: HYDROXYZINE HYDROCHLORIDE
  29. HYOSCYAMINE [Concomitant]
     Active Substance: HYOSCYAMINE
  30. IPRATROPIUM [Concomitant]
     Active Substance: IPRATROPIUM
  31. KENALOG [Concomitant]
     Active Substance: TRIAMCINOLONE ACETONIDE
  32. Lido [Concomitant]
  33. PRILOCAINE [Concomitant]
     Active Substance: PRILOCAINE
  34. Medroxyproges lens [Concomitant]
  35. METHOTREXATE [Concomitant]
     Active Substance: METHOTREXATE
  36. Montelukast 1 A Pharma [Concomitant]
  37. Nortriptylin glenmark [Concomitant]
  38. NYSTATIN [Concomitant]
     Active Substance: NYSTATIN
  39. Triam a [Concomitant]
  40. OMEPRAZOLE\SODIUM BICARBONATE [Concomitant]
     Active Substance: OMEPRAZOLE\SODIUM BICARBONATE
  41. OMEPRAZOLE\SODIUM BICARBONATE [Concomitant]
     Active Substance: OMEPRAZOLE\SODIUM BICARBONATE
  42. ONDANSETRON HYDROCHLORIDE [Concomitant]
     Active Substance: ONDANSETRON HYDROCHLORIDE
  43. PREDNISONE ACETATE [Concomitant]
     Active Substance: PREDNISONE ACETATE
  44. PREDNISONE ACETATE [Concomitant]
     Active Substance: PREDNISONE ACETATE
  45. PREDNISONE ACETATE [Concomitant]
     Active Substance: PREDNISONE ACETATE
  46. PREGABALIN [Concomitant]
     Active Substance: PREGABALIN
  47. PREGABALIN [Concomitant]
     Active Substance: PREGABALIN
  48. PREGABALIN [Concomitant]
     Active Substance: PREGABALIN
  49. QVAR REDIHALER [Concomitant]
     Active Substance: BECLOMETHASONE DIPROPIONATE
  50. SCOPOLAMINE [Concomitant]
     Active Substance: SCOPOLAMINE
  51. Sulfasalazin en [Concomitant]
  52. TOPAMAX [Concomitant]
     Active Substance: TOPIRAMATE
  53. TOPIRAMATE [Concomitant]
     Active Substance: TOPIRAMATE
  54. Triamcin. aceton.acet., micon.nit.,neom.sulf. [Concomitant]
  55. WIXELA INHUB [Concomitant]
     Active Substance: FLUTICASONE PROPIONATE\SALMETEROL XINAFOATE
  56. XOLAIR [Concomitant]
     Active Substance: OMALIZUMAB

REACTIONS (4)
  - Drug ineffective [Unknown]
  - Skin lesion [Unknown]
  - Condition aggravated [Unknown]
  - Skin lesion [Unknown]
